FAERS Safety Report 15713951 (Version 3)
Quarter: 2018Q4

REPORT INFORMATION
  Report Type: Spontaneous
  Country: NL (occurrence: NL)
  Receive Date: 20181212
  Receipt Date: 20181224
  Transmission Date: 20190205
  Serious: Yes (Hospitalization)
  Sender: FDA-Public Use
  Company Number: NL-RARE DISEASE THERAPEUTICS, INC.-2060079

PATIENT
  Age: 71 Year
  Sex: Female

DRUGS (11)
  1. CYTARABINE. [Suspect]
     Active Substance: CYTARABINE
     Dates: start: 20170622, end: 20170623
  2. DOLOCIN [Concomitant]
  3. METHOTREXATE. [Suspect]
     Active Substance: METHOTREXATE
     Route: 048
     Dates: start: 20171106, end: 20171106
  4. CLOFARABINE. [Suspect]
     Active Substance: CLOFARABINE
     Route: 042
     Dates: start: 20170110, end: 20170114
  5. DALACIN [Concomitant]
     Active Substance: CLINDAMYCIN
  6. DEXAMETHASONE. [Suspect]
     Active Substance: DEXAMETHASONE
     Route: 037
     Dates: start: 20170706, end: 20170706
  7. VANCOMYCIN [Concomitant]
     Active Substance: VANCOMYCIN
  8. PEGASPARAGINASE [Suspect]
     Active Substance: PEGASPARGASE
     Route: 042
     Dates: start: 20170624, end: 20170624
  9. PURIXAN [Suspect]
     Active Substance: MERCAPTOPURINE
     Route: 065
     Dates: start: 20171030, end: 20171111
  10. METHOTREXATE. [Suspect]
     Active Substance: METHOTREXATE
     Route: 048
     Dates: start: 20170706, end: 20170706
  11. PREDNISOLONE. [Suspect]
     Active Substance: PREDNISOLONE
     Dates: start: 20171030, end: 20171105

REACTIONS (1)
  - Staphylococcal bacteraemia [Recovered/Resolved]

NARRATIVE: CASE EVENT DATE: 20171112
